FAERS Safety Report 6308873-2 (Version None)
Quarter: 2009Q3

REPORT INFORMATION
  Report Type: 
  Country: None (occurrence: None)
  Receive Date: 20090813
  Receipt Date: 20090325
  Transmission Date: 20100115
  Serious: Yes (Other)
  Sender: FDA-Public Use
  Company Number: US-ALLERGAN-0901641US

PATIENT
  Age: 70 Year
  Sex: Male
  Weight: 81.633 kg

DRUGS (2)
  1. COMBIGAN [Suspect]
     Indication: GLAUCOMA
     Dosage: 1 GTT, BID
     Route: 047
     Dates: start: 20080910, end: 20090312
  2. XALATAN [Concomitant]
     Indication: GLAUCOMA
     Dosage: UNK, QHS

REACTIONS (4)
  - ASTHENIA [None]
  - CHEST PAIN [None]
  - DENTAL CARIES [None]
  - DRY MOUTH [None]
